FAERS Safety Report 21880801 (Version 6)
Quarter: 2023Q1

REPORT INFORMATION
  Report Type: Report from Study
  Country: GB (occurrence: GB)
  Receive Date: 20230118
  Receipt Date: 20230210
  Transmission Date: 20230418
  Serious: Yes (Hospitalization, Other)
  Sender: FDA-Public Use
  Company Number: GB-ABBVIE-4184915

PATIENT
  Age: 73 Year
  Sex: Male

DRUGS (23)
  1. BISOPROLOL [Suspect]
     Active Substance: BISOPROLOL
     Indication: Heart rate irregular
     Dosage: 1.25 MILLIGRAM (FREQUENCY TEXT: OVER THE WEEKEND)
     Route: 065
  2. APIXABAN [Suspect]
     Active Substance: APIXABAN
     Indication: Heart rate irregular
     Dosage: 5 MILLIGRAM (AT 8PM OVER THE WEEKEND)
     Route: 065
  3. APIXABAN [Suspect]
     Active Substance: APIXABAN
     Indication: Atrial fibrillation
     Dosage: UNK
     Route: 065
  4. CARBIDOPA\LEVODOPA [Suspect]
     Active Substance: CARBIDOPA\LEVODOPA
     Indication: Parkinson^s disease
     Dosage: DOSE INCREASES (START DATE: NOV-2022) MD:11.6 MLS, ED:2.0MLS, CR:4.0MLS/HR
     Route: 065
  5. CARBIDOPA\LEVODOPA [Suspect]
     Active Substance: CARBIDOPA\LEVODOPA
     Dosage: 20MGS/5MGS (START DATE: NOV-2022) MD:11.4 ED:2.0,CR:3.8, 20MGS/5MGS, LAST ADMIN DATE 2022
     Route: 065
     Dates: end: 202211
  6. CARBIDOPA\LEVODOPA [Suspect]
     Active Substance: CARBIDOPA\LEVODOPA
     Dosage: UNK (DUODOPA 20MGS/5MGS; MD: 11.6MLS, CR: 4.0MLS, ED:2.2MLS;)
     Route: 065
     Dates: start: 2022, end: 2022
  7. CARBIDOPA\LEVODOPA [Suspect]
     Active Substance: CARBIDOPA\LEVODOPA
     Dosage: UNK 20MGS/5MGS MD:11.4 ED:2.0,CR:3.6;
     Route: 065
  8. CARBIDOPA\LEVODOPA [Suspect]
     Active Substance: CARBIDOPA\LEVODOPA
     Dosage: DOSE INCREASES, MD:11.6 MLS, ED:2.0MLS, CR:4.0MLS/HRLAST ADMINISTRATION DOSE: 2022
     Route: 065
     Dates: start: 202211, end: 2022
  9. CARBIDOPA\LEVODOPA [Suspect]
     Active Substance: CARBIDOPA\LEVODOPA
     Dosage: UNK, DOSE INCREASES, MD:11.6 MLS, ED:2.0MLS, CR:4.0MLS/HRLAST ADMINISTRATION DOSE: 2022;
     Route: 065
     Dates: start: 202211
  10. CARBIDOPA\LEVODOPA [Suspect]
     Active Substance: CARBIDOPA\LEVODOPA
     Dosage: UNK (20MGS/5MGS MD:11.4 ED:2.0,CR:3.6;)
     Route: 065
     Dates: start: 20230119
  11. ROTIGOTINE [Concomitant]
     Active Substance: ROTIGOTINE
     Indication: Parkinson^s disease
     Dosage: 4 MILLIGRAM, RITIGOTINE PATCHFREQUENCY TEXT: AT 8AM;
     Route: 065
  12. ROTIGOTINE [Concomitant]
     Active Substance: ROTIGOTINE
     Dosage: 4 MILLIGRAM (FLUID)
     Route: 065
  13. ROPINIROLE [Concomitant]
     Active Substance: ROPINIROLE
     Indication: Parkinson^s disease
     Dosage: 6 MILLIGRAM (AT 8 PM)
     Route: 065
  14. ROPINIROLE [Concomitant]
     Active Substance: ROPINIROLE
     Dosage: 2 MILLIGRAM
     Route: 065
  15. SINEMET [Concomitant]
     Active Substance: CARBIDOPA\LEVODOPA
     Indication: Product used for unknown indication
     Dosage: 100/25MG, HALF SINEMETFREQUENCY TEXT: X2 AT 8PM
     Route: 065
  16. SINEMET [Concomitant]
     Active Substance: CARBIDOPA\LEVODOPA
     Dosage: UNK, (100/25MG)
     Route: 065
  17. VERAPAMIL [Concomitant]
     Active Substance: VERAPAMIL HYDROCHLORIDE
     Indication: Product used for unknown indication
     Dosage: 30 MILLIGRAM
     Route: 065
  18. RETINOL [Concomitant]
     Active Substance: RETINOL
     Indication: Product used for unknown indication
     Dosage: 6 MILLIGRAM
     Route: 065
  19. PHENTOLAMINE MESYLATE [Concomitant]
     Active Substance: PHENTOLAMINE MESYLATE
     Indication: Product used for unknown indication
     Dosage: 4 MILLIGRAM, (8PM TO 8AM)
     Route: 065
  20. PHENTOLAMINE MESYLATE [Concomitant]
     Active Substance: PHENTOLAMINE MESYLATE
     Dosage: 4 GRAM
     Route: 065
  21. AMANTADINE [Concomitant]
     Active Substance: AMANTADINE
     Indication: Parkinson^s disease
     Dosage: 100 MILLIGRAM
     Route: 065
  22. CARBIDOPA\LEVODOPA [Concomitant]
     Active Substance: CARBIDOPA\LEVODOPA
     Indication: Parkinson^s disease
     Dosage: UNK (25/100MGS X 2)
     Route: 065
  23. DIGOXIN [Concomitant]
     Active Substance: DIGOXIN
     Dosage: UNK
     Route: 065

REACTIONS (46)
  - Arrhythmia [Not Recovered/Not Resolved]
  - Malaise [Unknown]
  - Stoma site reaction [Not Recovered/Not Resolved]
  - Weight decreased [Not Recovered/Not Resolved]
  - Hypertension [Unknown]
  - Muscle rigidity [Not Recovered/Not Resolved]
  - Feeling abnormal [Recovered/Resolved]
  - Stoma site discharge [Unknown]
  - Freezing phenomenon [Not Recovered/Not Resolved]
  - On and off phenomenon [Unknown]
  - Device use issue [Unknown]
  - Atrial fibrillation [Not Recovered/Not Resolved]
  - Paraesthesia [Recovering/Resolving]
  - Peripheral swelling [Recovering/Resolving]
  - Stoma site erythema [Recovering/Resolving]
  - Device issue [Recovering/Resolving]
  - Malabsorption [Not Recovered/Not Resolved]
  - Stoma site inflammation [Not Recovered/Not Resolved]
  - Hypoaesthesia [Recovering/Resolving]
  - Tremor [Unknown]
  - Dizziness [Recovered/Resolved]
  - Hypotension [Not Recovered/Not Resolved]
  - Hallucination [Unknown]
  - Abnormal dreams [Unknown]
  - Stoma site hypergranulation [Unknown]
  - Dysstasia [Unknown]
  - Asthenia [Unknown]
  - Grip strength decreased [Unknown]
  - Cognitive disorder [Unknown]
  - Bradykinesia [Unknown]
  - Adverse drug reaction [Not Recovered/Not Resolved]
  - Fall [Unknown]
  - Dyskinesia [Recovered/Resolved]
  - Device loosening [Recovered/Resolved]
  - Head discomfort [Recovered/Resolved]
  - Hypophagia [Unknown]
  - Troponin increased [Unknown]
  - Incorrect dose administered [Unknown]
  - Food interaction [Not Recovered/Not Resolved]
  - Device dislocation [Not Recovered/Not Resolved]
  - Loss of consciousness [Unknown]
  - Stoma site odour [Recovering/Resolving]
  - Speech disorder [Unknown]
  - Device connection issue [Recovered/Resolved]
  - Cardiac disorder [Not Recovered/Not Resolved]
  - Heart rate irregular [Not Recovered/Not Resolved]

NARRATIVE: CASE EVENT DATE: 20220101
